FAERS Safety Report 19773321 (Version 2)
Quarter: 2021Q3

REPORT INFORMATION
  Report Type: Spontaneous
  Country: DE (occurrence: DE)
  Receive Date: 20210901
  Receipt Date: 20210915
  Transmission Date: 20211014
  Serious: Yes (Other)
  Sender: FDA-Public Use
  Company Number: DE-DRREDDYS-CLI/GER/21/0139357

PATIENT
  Age: 36 Year
  Sex: Female

DRUGS (18)
  1. IDEOS [Concomitant]
     Active Substance: CALCIUM CARBONATE\CHOLECALCIFEROL
     Indication: HYPOPARATHYROIDISM
  2. MAGNESIUM VERLA CONCENTRATED [Concomitant]
     Indication: HYPOPARATHYROIDISM
  3. SPIRONOLACTONE. [Concomitant]
     Active Substance: SPIRONOLACTONE
     Indication: OEDEMA
  4. CALCITRIOL. [Concomitant]
     Active Substance: CALCITRIOL
     Indication: HYPOPARATHYROIDISM
  5. CANDESARTAN. [Suspect]
     Active Substance: CANDESARTAN
     Indication: HYPERTENSION
  6. NATPARA (PARATHYROID HORMONE) [Suspect]
     Active Substance: PARATHYROID HORMONE
     Dates: start: 20170928
  7. MAGNESIUM VERLA [Concomitant]
     Active Substance: MAGNESIUM
     Indication: HYPOPARATHYROIDISM
     Dosage: 4?5 SACHETS
  8. NATPARA (PARATHYROID HORMONE) [Suspect]
     Active Substance: PARATHYROID HORMONE
     Indication: HYPOPARATHYROIDISM
     Dates: start: 20170928
  9. CALCITRAT [Concomitant]
     Indication: HYPOPARATHYROIDISM
  10. XIPAMID [Concomitant]
     Active Substance: XIPAMIDE
     Indication: HYPERTENSION
  11. XIPAMID [Concomitant]
     Active Substance: XIPAMIDE
     Indication: OEDEMA
  12. KALIUM?R [Concomitant]
     Indication: HYPOKALAEMIA
  13. L?THYROXIN [Concomitant]
     Active Substance: LEVOTHYROXINE SODIUM
     Indication: THYROIDECTOMY
  14. L?THYROXIN [Concomitant]
     Active Substance: LEVOTHYROXINE SODIUM
  15. PANTOPRAZOLE [Suspect]
     Active Substance: PANTOPRAZOLE
     Indication: GASTRIC DISORDER
  16. AMGEVITA [Concomitant]
     Active Substance: ADALIMUMAB
     Indication: CROHN^S DISEASE
     Dosage: 40 MILLIGRAM, Q2WEEKS
  17. CORTISONE [Suspect]
     Active Substance: CORTISONE
     Indication: PRODUCT USED FOR UNKNOWN INDICATION
  18. CALCIUM [Concomitant]
     Active Substance: CALCIUM
     Indication: HYPOPARATHYROIDISM

REACTIONS (6)
  - Device issue [Recovered/Resolved]
  - Therapy interrupted [Recovered/Resolved]
  - Diarrhoea [Recovered/Resolved]
  - Abortion spontaneous [Recovered/Resolved]
  - Pregnancy [Unknown]
  - Exposure during pregnancy [Recovered/Resolved]

NARRATIVE: CASE EVENT DATE: 202104
